FAERS Safety Report 16376474 (Version 1)
Quarter: 2019Q2

REPORT INFORMATION
  Report Type: Spontaneous
  Country: CN (occurrence: CN)
  Receive Date: 20190531
  Receipt Date: 20190531
  Transmission Date: 20190711
  Serious: Yes (Hospitalization)
  Sender: FDA-Public Use
  Company Number: CN-ARBOR PHARMACEUTICALS, LLC-CN-2019ARB000882

PATIENT
  Age: 89 Year
  Sex: Female

DRUGS (2)
  1. GABAPENTIN ENACARBIL [Suspect]
     Active Substance: GABAPENTIN ENACARBIL
     Indication: ALLODYNIA
     Dosage: UNK
     Route: 065
  2. GABAPENTIN ENACARBIL [Suspect]
     Active Substance: GABAPENTIN ENACARBIL
     Dosage: 300 MG, TID
     Route: 065

REACTIONS (2)
  - Toxicity to various agents [Recovered/Resolved]
  - Myoclonus [Recovered/Resolved]
